FAERS Safety Report 7069213-7 (Version None)
Quarter: 2010Q4

REPORT INFORMATION
  Report Type: 
  Country: None (occurrence: None)
  Receive Date: 20101028
  Receipt Date: 20101019
  Transmission Date: 20110411
  Serious: Yes (Hospitalization)
  Sender: FDA-Public Use
  Company Number: B0681403A

PATIENT
  Sex: Male

DRUGS (5)
  1. SALBUTAMOL [Suspect]
     Indication: ASTHMA
     Dosage: 100MCG AS REQUIRED
     Route: 055
     Dates: start: 20060129
  2. SERETIDE [Suspect]
     Indication: ASTHMA
     Dosage: 2PUFF TWICE PER DAY
     Route: 055
     Dates: start: 20060129
  3. CHAMPIX [Suspect]
     Indication: TOBACCO ABUSE
     Dosage: .5MG PER DAY
     Route: 048
     Dates: start: 20100710
  4. KENZEN [Concomitant]
  5. ALLOPURINOL [Concomitant]

REACTIONS (1)
  - ACUTE CORONARY SYNDROME [None]
